FAERS Safety Report 8212788-2 (Version None)
Quarter: 2012Q1

REPORT INFORMATION
  Report Type: 
  Country: None (occurrence: None)
  Receive Date: 20120229
  Receipt Date: 20110408
  Transmission Date: 20120608
  Serious: Yes (Hospitalization)
  Sender: FDA-Public Use
  Company Number: US-JNJFOC-20110302853

PATIENT
  Age: 54 Year
  Sex: Male

DRUGS (4)
  1. IBUPROFEN [Suspect]
     Indication: PAIN
     Dosage: 1200 MG, IN 1 DAY, ORAL
     Route: 048
     Dates: start: 20100701, end: 20110209
  2. ALCOHOL (ETHANOL) [Suspect]
     Indication: PRODUCT USED FOR UNKNOWN INDICATION
  3. BLINDED THERAPY (INVESTIGATIONAL DRUG) UNSPECIFIED [Suspect]
     Indication: NON-SMALL CELL LUNG CANCER
     Dosage: INTRAMUSCULAR
     Route: 030
  4. INFLUENZA VIRUS VACCINE POLYVALENT (INFLUENZA VIRUS VACCINE POLYVALENT [Concomitant]

REACTIONS (1)
  - GASTRITIS [None]
